FAERS Safety Report 7465701-X (Version None)
Quarter: 2011Q2

REPORT INFORMATION
  Report Type: 
  Country: None (occurrence: None)
  Receive Date: 20110509
  Receipt Date: 20110422
  Transmission Date: 20111010
  Serious: Yes (Hospitalization)
  Sender: FDA-Public Use
  Company Number: B0714817A

PATIENT
  Sex: Male
  Weight: 115 kg

DRUGS (4)
  1. NOCTAMIDE [Concomitant]
     Dosage: 2MG UNKNOWN
     Route: 048
     Dates: start: 20110315
  2. ARIXTRA [Suspect]
     Indication: THROMBOPHLEBITIS
     Dosage: 10MG PER DAY
     Route: 058
     Dates: start: 20110314, end: 20110317
  3. PREVISCAN [Suspect]
     Indication: THROMBOPHLEBITIS
     Dosage: 1.5TAB UNKNOWN
     Route: 048
     Dates: start: 20110315, end: 20110317
  4. PARACETAMOL [Concomitant]
     Dosage: 1G THREE TIMES PER DAY
     Route: 048
     Dates: start: 20110315

REACTIONS (1)
  - HAEMARTHROSIS [None]
